FAERS Safety Report 23664291 (Version 1)
Quarter: 2024Q1

REPORT INFORMATION
  Report Type: Spontaneous
  Country: US (occurrence: US)
  Receive Date: 20240322
  Receipt Date: 20240322
  Transmission Date: 20240410
  Serious: No
  Sender: FDA-Public Use
  Company Number: US-Covis Pharma GmbH-2024COV00278

PATIENT
  Age: 64 Year
  Sex: Male

DRUGS (5)
  1. RILUZOLE [Suspect]
     Active Substance: RILUZOLE
     Route: 048
  2. SODIUM PHENYLBUTYRATE\TAURURSODIOL [Suspect]
     Active Substance: SODIUM PHENYLBUTYRATE\TAURURSODIOL
     Indication: Amyotrophic lateral sclerosis
     Dosage: 1 DOSAGE FORM 1 SACHET ONCE DAILY FOR 3 WEEKS, THEN 1 SACHET TWICE DAILY, 2/DAYS
     Route: 048
     Dates: start: 20231017, end: 2023
  3. VITAMIN D [Concomitant]
     Active Substance: VITAMIN D NOS
  4. LIPITOR [Concomitant]
     Active Substance: ATORVASTATIN CALCIUM
  5. AVAPRO [Concomitant]
     Active Substance: IRBESARTAN

REACTIONS (14)
  - Feeling abnormal [Unknown]
  - Gastrointestinal disorder [Unknown]
  - Abdominal distension [Unknown]
  - Malaise [Recovering/Resolving]
  - Product use complaint [Unknown]
  - Skin laceration [Unknown]
  - Muscular weakness [Not Recovered/Not Resolved]
  - Diarrhoea [Unknown]
  - Weight increased [Unknown]
  - Weight decreased [Unknown]
  - Tachypnoea [Unknown]
  - Intentional dose omission [Unknown]
  - Dizziness [Unknown]
  - Flatulence [Unknown]

NARRATIVE: CASE EVENT DATE: 20231026
